FAERS Safety Report 17156321 (Version 1)
Quarter: 2019Q4

REPORT INFORMATION
  Report Type: Spontaneous
  Country: US (occurrence: US)
  Receive Date: 20191216
  Receipt Date: 20191216
  Transmission Date: 20200122
  Serious: No
  Sender: FDA-Public Use
  Company Number: US-ASTRAZENECA-2019SF68575

PATIENT
  Age: 48 Year
  Sex: Female
  Weight: 87.1 kg

DRUGS (2)
  1. CERTALINE [Concomitant]
     Indication: DRUG HYPERSENSITIVITY
  2. FASENRA [Suspect]
     Active Substance: BENRALIZUMAB
     Indication: ASTHMA
     Dosage: UNKNOWN DOSE
     Route: 058
     Dates: start: 2018

REACTIONS (5)
  - Feeling abnormal [Recovered/Resolved]
  - Rash [Recovered/Resolved]
  - Dyspnoea [Recovered/Resolved]
  - Heart rate decreased [Recovered/Resolved]
  - Blood pressure decreased [Recovered/Resolved]

NARRATIVE: CASE EVENT DATE: 2018
